FAERS Safety Report 25350285 (Version 1)
Quarter: 2025Q2

REPORT INFORMATION
  Report Type: Spontaneous
  Country: US (occurrence: US)
  Receive Date: 20250523
  Receipt Date: 20250523
  Transmission Date: 20250717
  Serious: No
  Sender: GLAXOSMITHKLINE
  Company Number: US-GSK-US2025060449

PATIENT
  Age: 87 Year
  Sex: Male

DRUGS (4)
  1. TRELEGY ELLIPTA [Suspect]
     Active Substance: FLUTICASONE FUROATE\UMECLIDINIUM BROMIDE\VILANTEROL TRIFENATATE
     Indication: Productive cough
     Dosage: 1 PUFF(S), QD, 100/62.5/25 MCG
     Dates: start: 202505
  2. OFEV [Concomitant]
     Active Substance: NINTEDANIB
     Indication: Lung disorder
     Dosage: 1 DF, BID, BEEN ON THIS MEDICATION FOR 8 MONTHS
     Route: 048
     Dates: start: 2024
  3. COZAAR [Concomitant]
     Active Substance: LOSARTAN POTASSIUM
     Indication: Hypertension
     Dosage: 1 DF, QD, BY MOUTH AT NIGHT
     Route: 048
  4. LIPITOR [Concomitant]
     Active Substance: ATORVASTATIN CALCIUM
     Indication: Blood cholesterol
     Dosage: 1 DF, QD BY MOUTH AT NIGHT
     Route: 048

REACTIONS (3)
  - Diarrhoea [Not Recovered/Not Resolved]
  - Dyspnoea [Not Recovered/Not Resolved]
  - Off label use [Unknown]

NARRATIVE: CASE EVENT DATE: 20250501
